FAERS Safety Report 4322022-1 (Version None)
Quarter: 2004Q1

REPORT INFORMATION
  Report Type: 
  Country: None (occurrence: None)
  Receive Date: 20040319
  Receipt Date: 20031124
  Transmission Date: 20041129
  Serious: No
  Sender: FDA-Public Use
  Company Number: 200312626

PATIENT
  Age: 51 Year
  Sex: Female
  Weight: 72.5755 kg

DRUGS (1)
  1. LUMIGAN [Suspect]
     Indication: GLAUCOMA
     Dosage: 2 DROP QHS EYE
     Dates: start: 20031003, end: 20031010

REACTIONS (6)
  - ERYTHEMA OF EYELID [None]
  - EYE DISORDER [None]
  - EYE PAIN [None]
  - EYELID OEDEMA [None]
  - HEADACHE [None]
  - VISION BLURRED [None]
